FAERS Safety Report 13337234 (Version 3)
Quarter: 2017Q2

REPORT INFORMATION
  Report Type: Report from Study
  Country: US (occurrence: US)
  Receive Date: 20170315
  Receipt Date: 20170421
  Transmission Date: 20170830
  Serious: Yes (Hospitalization)
  Sender: FDA-Public Use
  Company Number: US-ROCHE-1906918

PATIENT
  Age: 82 Year
  Sex: Male
  Weight: 78.09 kg

DRUGS (14)
  1. COMBIGAN [Concomitant]
     Active Substance: BRIMONIDINE TARTRATE\TIMOLOL MALEATE
     Route: 065
  2. MIRTAZAPINE. [Concomitant]
     Active Substance: MIRTAZAPINE
     Route: 048
  3. TAMSULOSIN [Concomitant]
     Active Substance: TAMSULOSIN
     Route: 048
  4. ESBRIET [Suspect]
     Active Substance: PIRFENIDONE
     Dosage: 2 CAPSULE BY MOUTH ( DAY 8 THOUGH 14)
     Route: 048
  5. DOXAZOSIN [Concomitant]
     Active Substance: DOXAZOSIN\DOXAZOSIN MESYLATE
     Route: 048
  6. LUMIGAN [Concomitant]
     Active Substance: BIMATOPROST
     Route: 065
  7. BUPROPION. [Concomitant]
     Active Substance: BUPROPION
     Route: 048
  8. RESTASIS [Concomitant]
     Active Substance: CYCLOSPORINE
     Route: 065
  9. METOPROLOL TARTRATE. [Concomitant]
     Active Substance: METOPROLOL TARTRATE
     Route: 048
  10. ESBRIET [Suspect]
     Active Substance: PIRFENIDONE
     Indication: IDIOPATHIC PULMONARY FIBROSIS
     Dosage: 1 CAPSULE BY MOUTH ( DAY 1 THOUGH 7)
     Route: 048
  11. ESBRIET [Suspect]
     Active Substance: PIRFENIDONE
     Dosage: 3 CAPSULE BY MOUTH ( DAY 15 ONWARDS)
     Route: 048
  12. LATANOPROST. [Concomitant]
     Active Substance: LATANOPROST
  13. ELIQUIS [Concomitant]
     Active Substance: APIXABAN
     Route: 048
  14. OMEPRAZOLE. [Concomitant]
     Active Substance: OMEPRAZOLE
     Route: 048

REACTIONS (4)
  - Hip fracture [Recovering/Resolving]
  - Lip swelling [Recovered/Resolved]
  - Urticaria [Recovered/Resolved]
  - Fall [Unknown]

NARRATIVE: CASE EVENT DATE: 201701
